FAERS Safety Report 7552293-X (Version None)
Quarter: 2011Q2

REPORT INFORMATION
  Report Type: 
  Country: None (occurrence: None)
  Receive Date: 20110616
  Receipt Date: 20110531
  Transmission Date: 20111010
  Serious: No
  Sender: FDA-Public Use
  Company Number: US-B.I. PHARMACEUTICALS,INC./RIDGEFIELD-2011-BP-08845BP

PATIENT
  Sex: Male
  Weight: 80.7 kg

DRUGS (7)
  1. COZAAR [Concomitant]
     Dosage: 100 MG
  2. AMLODIPINE [Concomitant]
     Dosage: 5 MG
  3. TOPROL-XL [Concomitant]
     Dosage: 25 MG
  4. HYDROCHLOROTHIAZIDE [Concomitant]
     Dosage: 25 MG
  5. PRADAXA [Suspect]
     Indication: ATRIAL FIBRILLATION
     Dosage: 300 MG
     Dates: start: 20110301, end: 20110306
  6. DOXAZOSIN MESYLATE [Concomitant]
     Dosage: 8 MG
  7. AMIODARONE HCL [Concomitant]
     Dosage: 200 MG

REACTIONS (2)
  - ABDOMINAL DISCOMFORT [None]
  - DIZZINESS [None]
